FAERS Safety Report 20418464 (Version 2)
Quarter: 2022Q1

REPORT INFORMATION
  Report Type: Spontaneous
  Country: US (occurrence: US)
  Receive Date: 20220202
  Receipt Date: 20220307
  Transmission Date: 20220423
  Serious: Yes (Hospitalization)
  Sender: FDA-Public Use
  Company Number: US-GILEAD-2022-0567510

PATIENT
  Age: 12 Year
  Sex: Male
  Weight: 28.39 kg

DRUGS (18)
  1. REMDESIVIR [Suspect]
     Active Substance: REMDESIVIR
     Indication: COVID-19
     Dosage: 70 MG, QD
     Route: 042
     Dates: start: 20220107, end: 20220111
  2. REMDESIVIR [Suspect]
     Active Substance: REMDESIVIR
     Indication: COVID-19 pneumonia
  3. CEFTRIAXONE [Concomitant]
     Active Substance: CEFTRIAXONE
     Dosage: UNK
     Dates: start: 20220107, end: 20220107
  4. SULTAMICILLIN [Concomitant]
     Active Substance: SULTAMICILLIN
     Dosage: UNK
     Dates: start: 20220107, end: 20220127
  5. EPIDIOLEX [Concomitant]
     Active Substance: CANNABIDIOL
     Dosage: UNK
     Dates: start: 20220107, end: 20220127
  6. FELBAMATE [Concomitant]
     Active Substance: FELBAMATE
     Dosage: UNK
     Dates: start: 20220107, end: 20220126
  7. ACETAMINOPHEN [Concomitant]
     Active Substance: ACETAMINOPHEN
     Dosage: UNK
     Dates: start: 20220107, end: 20220126
  8. ENOXAPARIN [Concomitant]
     Active Substance: ENOXAPARIN
     Dosage: UNK
     Dates: start: 20220107, end: 20220112
  9. GLYCOPYRROLATE [Concomitant]
     Active Substance: GLYCOPYRROLATE
     Dosage: UNK
     Dates: start: 20220107, end: 20220112
  10. OMEPRAZOLE [Concomitant]
     Active Substance: OMEPRAZOLE
     Dosage: UNK
     Dates: start: 20220107, end: 20220127
  11. ZONEGRAN [Concomitant]
     Active Substance: ZONISAMIDE
     Dosage: UNK
     Dates: start: 20220107, end: 20220127
  12. MIRALAX [Concomitant]
     Active Substance: POLYETHYLENE GLYCOL 3350
     Dosage: UNK
     Dates: start: 20220107, end: 20220112
  13. BUDESONIDE [Concomitant]
     Active Substance: BUDESONIDE
     Dosage: UNK
     Dates: start: 20220107, end: 20220127
  14. CHOLECALCIFEROL [Concomitant]
     Active Substance: CHOLECALCIFEROL
     Dosage: UNK
     Dates: start: 20220107, end: 20220127
  15. MUCOMYST [Concomitant]
     Active Substance: ACETYLCYSTEINE
     Dosage: UNK
     Dates: start: 20220110, end: 20220112
  16. PHYTONADIONE [Concomitant]
     Active Substance: PHYTONADIONE
  17. DEXTROSE [Concomitant]
     Active Substance: DEXTROSE
  18. ALBUTEROL SULFATE [Concomitant]
     Active Substance: ALBUTEROL SULFATE

REACTIONS (3)
  - Upper respiratory tract infection [Recovered/Resolved]
  - Cough [Recovered/Resolved]
  - Nasal congestion [Recovered/Resolved]

NARRATIVE: CASE EVENT DATE: 20220126
